FAERS Safety Report 7381614-6 (Version None)
Quarter: 2011Q1

REPORT INFORMATION
  Report Type: 
  Country: None (occurrence: None)
  Receive Date: 20110329
  Receipt Date: 20101005
  Transmission Date: 20110831
  Serious: Yes (Hospitalization, Other)
  Sender: FDA-Public Use
  Company Number: US-BAYER-200942874NA

PATIENT
  Sex: Female
  Weight: 61.224 kg

DRUGS (13)
  1. YASMIN [Suspect]
     Dosage: UNK
     Dates: start: 20060518, end: 20061227
  2. DIETARY SUPPLEMENT [Concomitant]
  3. YAZ [Suspect]
     Indication: PRODUCT USED FOR UNKNOWN INDICATION
     Dosage: UNK UNK, QD
     Route: 048
     Dates: start: 20081230, end: 20090221
  4. ALKA SELTZER [Concomitant]
  5. ORTHO-NOVUM [Concomitant]
     Indication: CONTRACEPTION
  6. PEPCID [Concomitant]
  7. YASMIN [Suspect]
     Indication: PRODUCT USED FOR UNKNOWN INDICATION
     Dosage: UNK UNK, QD
     Route: 048
     Dates: start: 20020101, end: 20020101
  8. YASMIN [Suspect]
     Dosage: UNK
     Dates: start: 20031222, end: 20040605
  9. YAZ [Suspect]
     Dosage: UNK
     Dates: start: 20090807
  10. YASMIN [Suspect]
     Dosage: UNK
     Dates: start: 20040828, end: 20041104
  11. YASMIN [Suspect]
     Dosage: UNK
     Dates: start: 20070226, end: 20070809
  12. YASMIN [Suspect]
     Dosage: UNK
     Dates: start: 20060125, end: 20060224
  13. EMETROL [Concomitant]

REACTIONS (6)
  - ABDOMINAL PAIN UPPER [None]
  - VOMITING [None]
  - THYROID DISORDER [None]
  - CHOLELITHIASIS [None]
  - NAUSEA [None]
  - CHOLECYSTITIS ACUTE [None]
